FAERS Safety Report 5614892-1 (Version None)
Quarter: 2008Q1

REPORT INFORMATION
  Report Type: 
  Country: None (occurrence: None)
  Receive Date: 20080206
  Receipt Date: 20080130
  Transmission Date: 20080703
  Serious: Yes (Hospitalization)
  Sender: FDA-Public Use
  Company Number: AU-RB-009206-08

PATIENT
  Sex: Male

DRUGS (1)
  1. NORSPAN 20 [Suspect]
     Dosage: 20.0 MICROGRAM, PER HOUR, TRANSDERMAL
     Route: 062
     Dates: start: 20070326

REACTIONS (2)
  - CHEST DISCOMFORT [None]
  - DYSPNOEA [None]
